FAERS Safety Report 6639433-1 (Version None)
Quarter: 2010Q1

REPORT INFORMATION
  Report Type: 
  Country: None (occurrence: None)
  Receive Date: 20100318
  Receipt Date: 20100315
  Transmission Date: 20100710
  Serious: Yes (Other)
  Sender: FDA-Public Use
  Company Number: US-RB-004859-10

PATIENT

DRUGS (1)
  1. DELSYM [Suspect]
     Route: 048

REACTIONS (1)
  - HALLUCINATION [None]
